FAERS Safety Report 10399291 (Version 2)
Quarter: 2014Q3

REPORT INFORMATION
  Report Type: Spontaneous
  Country: US (occurrence: None)
  Receive Date: 20130815
  Receipt Date: 20140815
  Transmission Date: 20150326
  Serious: Yes (Other)
  Sender: FDA-Public Use
  Company Number: ADR-2013-00370

PATIENT
  Sex: Male

DRUGS (2)
  1. MORPHINE INTRATHECAL [Suspect]
     Active Substance: MORPHINE
     Indication: PAIN
  2. BACLOFEN INTRATHECAL [Suspect]
     Active Substance: BACLOFEN
     Indication: MUSCLE SPASTICITY

REACTIONS (2)
  - Pain [None]
  - No therapeutic response [None]
